FAERS Safety Report 8204007-8 (Version None)
Quarter: 2012Q1

REPORT INFORMATION
  Report Type: 
  Country: None (occurrence: None)
  Receive Date: 20120313
  Receipt Date: 20120307
  Transmission Date: 20120608
  Serious: No
  Sender: FDA-Public Use
  Company Number: US-PFIZER INC-2012061336

PATIENT
  Sex: Female
  Weight: 83.9 kg

DRUGS (7)
  1. METOPROLOL [Concomitant]
     Indication: HYPERTENSION
     Dosage: 50 MG, 2X/DAY
  2. LASIX [Concomitant]
     Indication: PULMONARY HYPERTENSION
     Dosage: 40 MG, 2X/DAY
  3. GLUCOPHAGE [Concomitant]
     Indication: DIABETES MELLITUS
     Dosage: 1000 MG, 2X/DAY
  4. HUMALOG [Concomitant]
     Indication: DIABETES MELLITUS
     Dosage: 3X/DAY
  5. REVATIO [Suspect]
     Indication: PULMONARY HYPERTENSION
     Dosage: 20 MG, 3X/DAY
  6. LANTUS [Concomitant]
     Indication: DIABETES MELLITUS
     Dosage: 45 UNITS, DAILY
  7. BYETTA [Concomitant]
     Indication: DIABETES MELLITUS
     Dosage: 10 IU, 2X/DAY

REACTIONS (4)
  - INSOMNIA [None]
  - NASAL CONGESTION [None]
  - DYSPNOEA [None]
  - LACRIMATION INCREASED [None]
